FAERS Safety Report 7339142-X (Version None)
Quarter: 2011Q1

REPORT INFORMATION
  Report Type: 
  Country: None (occurrence: None)
  Receive Date: 20110308
  Receipt Date: 20110222
  Transmission Date: 20110831
  Serious: Yes (Other)
  Sender: FDA-Public Use
  Company Number: PHHY2011BR02651

PATIENT
  Sex: Female

DRUGS (2)
  1. GENTEAL [Suspect]
     Indication: DRY EYE
     Dosage: UNK UKN, UNK
     Dates: end: 20101001
  2. GENTEAL [Suspect]
     Dosage: 10 G, UNK

REACTIONS (4)
  - DRY EYE [None]
  - DRUG INEFFECTIVE [None]
  - EYE DISORDER [None]
  - KERATITIS [None]
